FAERS Safety Report 19429844 (Version 3)
Quarter: 2021Q3

REPORT INFORMATION
  Report Type: Report from Study
  Country: None (occurrence: US)
  Receive Date: 20210617
  Receipt Date: 20210708
  Transmission Date: 20211014
  Serious: Yes (Hospitalization, Other)
  Sender: FDA-Public Use
  Company Number: US-ABBVIE-21K-163-3951339-00

PATIENT
  Sex: Male
  Weight: 68.1 kg

DRUGS (3)
  1. HUMIRA [Suspect]
     Active Substance: ADALIMUMAB
     Indication: CROHN^S DISEASE
     Dosage: CITRATE FREE
     Route: 058
     Dates: start: 20210330, end: 202104
  2. HUMIRA [Suspect]
     Active Substance: ADALIMUMAB
     Indication: CROHN^S DISEASE
     Dosage: DAY 1?LOADING DOSE?CITRATE FREE
     Route: 058
  3. HUMIRA [Suspect]
     Active Substance: ADALIMUMAB
     Dosage: DAY 15?LOADING DOSE?CITRATE FREE
     Route: 058

REACTIONS (8)
  - Procedural pain [Unknown]
  - Intestinal stenosis [Unknown]
  - Postoperative abscess [Unknown]
  - Small intestinal resection [Unknown]
  - Abdominal pain [Recovered/Resolved]
  - Crohn^s disease [Unknown]
  - Abscess [Unknown]
  - Gastric infection [Unknown]

NARRATIVE: CASE EVENT DATE: 2021
